FAERS Safety Report 13341188 (Version 1)
Quarter: 2017Q1

REPORT INFORMATION
  Report Type: Spontaneous
  Country: US (occurrence: US)
  Receive Date: 20170315
  Receipt Date: 20170315
  Transmission Date: 20170428
  Serious: Yes (Other)
  Sender: FDA-Public Use
  Company Number: None

PATIENT
  Age: 58 Year
  Sex: Female
  Weight: 83.25 kg

DRUGS (4)
  1. CHANTIX [Suspect]
     Active Substance: VARENICLINE TARTRATE
     Indication: SMOKING CESSATION THERAPY
     Route: 048
     Dates: start: 20120818, end: 20161201
  2. MOVE FREE/GLUCOSAMINE+CHONDROITIN [Concomitant]
  3. BUPROPION HCL ER [Concomitant]
     Active Substance: BUPROPION HYDROCHLORIDE
  4. COQ10 [Concomitant]
     Active Substance: UBIDECARENONE

REACTIONS (1)
  - Lichen planus [None]

NARRATIVE: CASE EVENT DATE: 20131110
